FAERS Safety Report 11839979 (Version 1)
Quarter: 2015Q4

REPORT INFORMATION
  Report Type: Spontaneous
  Country: US (occurrence: US)
  Receive Date: 20151216
  Receipt Date: 20151216
  Transmission Date: 20160305
  Serious: No
  Sender: FDA-Public Use
  Company Number: US-DRREDDYS-USA/USA/14/0044781

PATIENT
  Age: 35 Year
  Sex: Male

DRUGS (1)
  1. OLANZAPINE FILM-COATED TABLET [Suspect]
     Active Substance: OLANZAPINE
     Indication: PSYCHIATRIC SYMPTOM
     Route: 065
     Dates: start: 201207

REACTIONS (5)
  - Dysarthria [Recovered/Resolved]
  - Musculoskeletal stiffness [Recovered/Resolved]
  - Posturing [Recovered/Resolved]
  - Drooling [Recovered/Resolved]
  - Vomiting [Recovered/Resolved]
